FAERS Safety Report 6534592-3 (Version None)
Quarter: 2010Q1

REPORT INFORMATION
  Report Type: 
  Country: None (occurrence: None)
  Receive Date: 20100112
  Receipt Date: 20100108
  Transmission Date: 20100710
  Serious: Yes (Other)
  Sender: FDA-Public Use
  Company Number: A0838517A

PATIENT
  Age: 63 Year
  Sex: Female

DRUGS (13)
  1. VERAMYST [Suspect]
     Indication: NASAL CONGESTION
     Route: 045
     Dates: start: 20080101
  2. BUPROPION HCL [Concomitant]
  3. AZITHROMYCIN [Concomitant]
  4. LASIX [Concomitant]
  5. PENTOXIFYLLINE [Concomitant]
  6. REVATIO [Concomitant]
  7. TRACLEER [Concomitant]
  8. AVALIDE [Concomitant]
  9. GABAPENTIN [Concomitant]
  10. ULTRAM [Concomitant]
  11. ACTOS [Concomitant]
  12. LEXAPRO [Concomitant]
  13. COMBIVENT [Concomitant]

REACTIONS (3)
  - AGEUSIA [None]
  - ANOSMIA [None]
  - INCORRECT STORAGE OF DRUG [None]
